FAERS Safety Report 18760543 (Version 2)
Quarter: 2021Q1

REPORT INFORMATION
  Report Type: Spontaneous
  Country: JP (occurrence: JP)
  Receive Date: 20210119
  Receipt Date: 20210329
  Transmission Date: 20210419
  Serious: Yes (Hospitalization, Other)
  Sender: FDA-Public Use
  Company Number: JP-SEATTLE GENETICS-2021SGN00161

PATIENT
  Age: 8 Decade
  Sex: Male

DRUGS (1)
  1. ADCETRIS [Suspect]
     Active Substance: BRENTUXIMAB VEDOTIN
     Indication: PERIPHERAL T-CELL LYMPHOMA UNSPECIFIED
     Dosage: UNK
     Route: 042
     Dates: start: 202007

REACTIONS (3)
  - Disease progression [Unknown]
  - Pneumocystis jirovecii pneumonia [Not Recovered/Not Resolved]
  - Peripheral T-cell lymphoma unspecified [Unknown]

NARRATIVE: CASE EVENT DATE: 202101
